FAERS Safety Report 14025849 (Version 7)
Quarter: 2018Q1

REPORT INFORMATION
  Report Type: Report from Study
  Country: None (occurrence: TW)
  Receive Date: 20170929
  Receipt Date: 20180316
  Transmission Date: 20180508
  Serious: Yes (Hospitalization)
  Sender: FDA-Public Use
  Company Number: TW-ABBVIE-17K-153-2075524-00

PATIENT
  Age: 31 Year
  Sex: Male
  Weight: 54 kg

DRUGS (4)
  1. HUMIRA [Suspect]
     Active Substance: ADALIMUMAB
     Route: 058
     Dates: start: 20170920, end: 20170920
  2. HUMIRA [Suspect]
     Active Substance: ADALIMUMAB
     Indication: CROHN^S DISEASE
     Route: 058
     Dates: start: 20171129
  3. HUMIRA [Suspect]
     Active Substance: ADALIMUMAB
     Route: 058
     Dates: start: 20180221
  4. HUMIRA [Suspect]
     Active Substance: ADALIMUMAB
     Indication: CROHN^S DISEASE
     Route: 058
     Dates: start: 20160330, end: 20170804

REACTIONS (12)
  - Prothrombin time prolonged [Unknown]
  - Blood albumin decreased [Unknown]
  - C-reactive protein increased [Unknown]
  - Monocyte count increased [Unknown]
  - Prohormone brain natriuretic peptide increased [Unknown]
  - Pleural effusion [Recovering/Resolving]
  - Haemoglobin decreased [Not Recovered/Not Resolved]
  - Pulmonary embolism [Recovering/Resolving]
  - Haematochezia [Recovering/Resolving]
  - Pneumonia mycoplasmal [Recovered/Resolved]
  - Activated partial thromboplastin time prolonged [Unknown]
  - Platelet count increased [Unknown]

NARRATIVE: CASE EVENT DATE: 2017
